FAERS Safety Report 8390572-7 (Version None)
Quarter: 2012Q2

REPORT INFORMATION
  Report Type: 
  Country: None (occurrence: None)
  Receive Date: 20120529
  Receipt Date: 20120516
  Transmission Date: 20120825
  Serious: Yes (Hospitalization)
  Sender: FDA-Public Use
  Company Number: US-ELI_LILLY_AND_COMPANY-US201205006968

PATIENT
  Sex: Female

DRUGS (1)
  1. FORTEO [Suspect]
     Indication: OSTEOPOROSIS
     Dosage: 20 U, QD
     Dates: start: 20110101

REACTIONS (4)
  - HIP ARTHROPLASTY [None]
  - COGNITIVE DISORDER [None]
  - UPPER LIMB FRACTURE [None]
  - DRUG DOSE OMISSION [None]
